FAERS Safety Report 17805115 (Version 2)
Quarter: 2020Q3

REPORT INFORMATION
  Report Type: Spontaneous
  Country: US (occurrence: US)
  Receive Date: 20200520
  Receipt Date: 20200706
  Transmission Date: 20201102
  Serious: Yes (Hospitalization, Other)
  Sender: FDA-Public Use
  Company Number: US-009507513-2005USA004817

PATIENT
  Sex: Female
  Weight: 184 kg

DRUGS (10)
  1. JANUMET [Suspect]
     Active Substance: METFORMIN HYDROCHLORIDE\SITAGLIPTIN PHOSPHATE
     Dosage: ONCE DAILY INCREASING TO ONE TABLET BID
     Route: 048
     Dates: start: 20090204, end: 20100704
  2. VICTOZA [Suspect]
     Active Substance: LIRAGLUTIDE
     Dosage: 0.6 SQ FOR ONE WEEK THEN 1.2 SQ, DAILY
     Route: 058
     Dates: start: 20120602, end: 20120802
  3. JANUMET [Suspect]
     Active Substance: METFORMIN HYDROCHLORIDE\SITAGLIPTIN PHOSPHATE
     Dosage: ONCE DAILY INCREASING TO ONE TABLET BID
     Route: 048
     Dates: start: 20120213, end: 20130617
  4. JANUMET [Suspect]
     Active Substance: METFORMIN HYDROCHLORIDE\SITAGLIPTIN PHOSPHATE
     Dosage: UNK
     Route: 048
     Dates: start: 20100705, end: 20101216
  5. JANUMET [Suspect]
     Active Substance: METFORMIN HYDROCHLORIDE\SITAGLIPTIN PHOSPHATE
     Dosage: ONCE DAILY INCREASING TO ONE TABLET BID
     Route: 048
     Dates: start: 20140513, end: 20150607
  6. JANUMET [Suspect]
     Active Substance: METFORMIN HYDROCHLORIDE\SITAGLIPTIN PHOSPHATE
     Dosage: ONCE DAILY INCREASING TO ONE TABLET BID
     Route: 048
     Dates: start: 20160117, end: 20160317
  7. VICTOZA [Suspect]
     Active Substance: LIRAGLUTIDE
     Dosage: 0.6 SQ FOR ONE WEEK THEN 1.2 SQ, DAILY
     Route: 058
     Dates: start: 20150921, end: 201701
  8. FISH OIL [Concomitant]
     Active Substance: FISH OIL
     Indication: ROUTINE HEALTH MAINTENANCE
     Dosage: UNK
     Dates: start: 2011, end: 2020
  9. ASCORBIC ACID (+) CRANBERRY [Concomitant]
     Indication: ROUTINE HEALTH MAINTENANCE
     Dosage: UNK
  10. ASPIRIN. [Concomitant]
     Active Substance: ASPIRIN
     Indication: BLOOD DISORDER
     Dosage: 81 MILLIGRAM
     Dates: start: 2008, end: 2018

REACTIONS (20)
  - Arthralgia [Unknown]
  - Abnormal loss of weight [Recovered/Resolved]
  - Nausea [Recovered/Resolved]
  - Obesity [Recovered/Resolved]
  - Eye operation [Unknown]
  - Gastrooesophageal reflux disease [Not Recovered/Not Resolved]
  - Thyroid disorder [Unknown]
  - Eye operation [Unknown]
  - Pain [Unknown]
  - Paraesthesia [Unknown]
  - Joint instability [Unknown]
  - Vomiting [Recovered/Resolved]
  - Knee operation [Unknown]
  - Vomiting [Recovered/Resolved]
  - Pancreatic carcinoma metastatic [Not Recovered/Not Resolved]
  - Nausea [Recovered/Resolved]
  - Inappropriate schedule of product administration [Unknown]
  - Pancreatitis acute [Recovered/Resolved]
  - Diastasis recti abdominis [Not Recovered/Not Resolved]
  - Hypoaesthesia [Unknown]

NARRATIVE: CASE EVENT DATE: 2009
